FAERS Safety Report 5506071-3 (Version None)
Quarter: 2007Q4

REPORT INFORMATION
  Report Type: 
  Country: None (occurrence: None)
  Receive Date: 20071105
  Receipt Date: 20071026
  Transmission Date: 20080405
  Serious: Yes (Other)
  Sender: FDA-Public Use
  Company Number: PHBS2007BR17988

PATIENT
  Age: 69 Year
  Sex: Female
  Weight: 71 kg

DRUGS (5)
  1. DIOVAN [Suspect]
     Indication: HYPERTENSION
     Dosage: 160 MG, QD
     Route: 048
     Dates: start: 20050101
  2. BROMAZEPAM [Concomitant]
     Dosage: UNK, QD
     Route: 048
  3. ATENOLOL [Concomitant]
     Dosage: 100 MG, QD
     Route: 048
  4. MINIPRESS [Concomitant]
     Dosage: UNK, QD
     Route: 048
  5. REBETOL [Concomitant]
     Dosage: UNK, QD
     Route: 048

REACTIONS (2)
  - CATHETERISATION CARDIAC [None]
  - STENT PLACEMENT [None]
